FAERS Safety Report 15441451 (Version 4)
Quarter: 2018Q4

REPORT INFORMATION
  Report Type: Report from Study
  Country: FR (occurrence: FR)
  Receive Date: 20180928
  Receipt Date: 20181205
  Transmission Date: 20190204
  Serious: Yes (Death, Life-Threatening, Hospitalization, Other)
  Sender: FDA-Public Use
  Company Number: FR-BRISTOL-MYERS SQUIBB COMPANY-BMS-2018-090425

PATIENT
  Age: 77 Year
  Sex: Female

DRUGS (1)
  1. NIVOLUMAB [Suspect]
     Active Substance: NIVOLUMAB
     Indication: BRONCHIAL CARCINOMA
     Dosage: UNK UNK, Q2WK
     Route: 065
     Dates: start: 20151014, end: 20151214

REACTIONS (9)
  - Pneumonitis [Recovered/Resolved]
  - Somnolence [Unknown]
  - Disorientation [Unknown]
  - General physical health deterioration [Fatal]
  - Bronchitis [Unknown]
  - Lung neoplasm malignant [Unknown]
  - Urinary retention [Unknown]
  - Pain [Unknown]
  - Agitation [Unknown]

NARRATIVE: CASE EVENT DATE: 20151014
